FAERS Safety Report 5822385-1 (Version None)
Quarter: 2008Q3

REPORT INFORMATION
  Report Type: 
  Country: None (occurrence: None)
  Receive Date: 20080722
  Receipt Date: 20080714
  Transmission Date: 20090109
  Serious: Yes (Other)
  Sender: FDA-Public Use
  Company Number: GXKR2008DE04404

PATIENT
  Age: 73 Year
  Sex: Female
  Weight: 69 kg

DRUGS (6)
  1. PREDNIHEXAL (NGX) (PREDNISOLONE) TABLET, 20MG [Suspect]
     Dosage: 2.5 MG, QD, ORAL, 5 MG, QD, ORAL, 10 MG, QD, ORAL, 20 MG, QD, ORAL
     Route: 048
     Dates: end: 20080510
  2. PREDNIHEXAL (NGX) (PREDNISOLONE) TABLET, 20MG [Suspect]
     Dosage: 2.5 MG, QD, ORAL, 5 MG, QD, ORAL, 10 MG, QD, ORAL, 20 MG, QD, ORAL
     Route: 048
  3. PREDNIHEXAL (NGX) (PREDNISOLONE) TABLET, 20MG [Suspect]
     Dosage: 2.5 MG, QD, ORAL, 5 MG, QD, ORAL, 10 MG, QD, ORAL, 20 MG, QD, ORAL
     Route: 048
     Dates: start: 20080426
  4. PREDNIHEXAL (NGX) (PREDNISOLONE) TABLET, 20MG [Suspect]
     Dosage: 2.5 MG, QD, ORAL, 5 MG, QD, ORAL, 10 MG, QD, ORAL, 20 MG, QD, ORAL
     Route: 048
  5. ATACAND HCT [Concomitant]
  6. BUDES (BUDESONIDE) [Concomitant]

REACTIONS (7)
  - FEELING ABNORMAL [None]
  - HYPERGLYCAEMIA [None]
  - HYPERTENSION [None]
  - INTRAOCULAR PRESSURE INCREASED [None]
  - NAUSEA [None]
  - STOMACH DISCOMFORT [None]
  - WEIGHT INCREASED [None]
